FAERS Safety Report 8729490 (Version 6)
Quarter: 2013Q1

REPORT INFORMATION
  Report Type: Spontaneous
  Country: US (occurrence: US)
  Receive Date: 20120817
  Receipt Date: 20130125
  Transmission Date: 20140127
  Serious: Yes (Hospitalization, Other)
  Sender: FDA-Public Use
  Company Number: US-009507513-1208USA006856

PATIENT
  Sex: 0

DRUGS (12)
  1. FOSAMAX [Suspect]
     Indication: OSTEOPOROSIS
     Dosage: 10 MG, QD
     Route: 048
     Dates: start: 199510, end: 200201
  2. FOSAMAX [Suspect]
     Dosage: 70 MG, QW
     Route: 048
     Dates: start: 200201, end: 200803
  3. FOSAMAX [Suspect]
     Indication: OSTEOPOROSIS
     Dosage: 70 MG, QW
     Route: 048
     Dates: start: 200803, end: 201006
  4. FOSAMAX PLUS D [Suspect]
     Indication: OSTEOPOROSIS
     Dosage: 70 MG, QW
     Route: 048
  5. HORMONES (UNSPECIFIED) [Concomitant]
     Dosage: UNK
     Dates: start: 1965, end: 2002
  6. CORTICOSTEROIDS (UNSPECIFIED) [Concomitant]
     Dosage: UNK
     Dates: start: 1990
  7. CALCIUM (UNSPECIFIED) (+) VITAMIN D (UNSPECIFIED) [Concomitant]
     Dosage: 600 MG, UNK
     Dates: start: 1995
  8. VITAMIN D (UNSPECIFIED) [Concomitant]
     Dosage: 1000 MG, UNK
     Route: 048
     Dates: start: 1995
  9. OMEGA-3 [Concomitant]
     Dosage: UNK
     Dates: start: 1995
  10. LUTIEN [Concomitant]
     Dosage: 20 MG, QD
     Route: 048
     Dates: start: 1995
  11. PREDNISONE [Concomitant]
     Indication: ASTHMA
     Dosage: INHALER
     Route: 055
  12. AZMACORT [Concomitant]
     Indication: ASTHMA

REACTIONS (30)
  - Open reduction of fracture [Unknown]
  - Femur fracture [Unknown]
  - Hernia repair [Unknown]
  - Cerebrovascular accident [Unknown]
  - Lower limb fracture [Unknown]
  - Thyroid neoplasm [Unknown]
  - Hypothyroidism [Not Recovered/Not Resolved]
  - Bone atrophy [Unknown]
  - Body height decreased [Unknown]
  - Ovarian failure [Unknown]
  - Macular degeneration [Unknown]
  - Abdominal pain [Unknown]
  - Constipation [Unknown]
  - Back pain [Unknown]
  - Fall [Unknown]
  - Thyroidectomy [Unknown]
  - Autoimmune thyroiditis [Unknown]
  - Subdural haematoma [Unknown]
  - Cerebrovascular operation [Unknown]
  - Cholecystectomy [Unknown]
  - Bladder neck suspension [Unknown]
  - Coronary artery disease [Unknown]
  - Pneumonia [Unknown]
  - Stress [Unknown]
  - Blood glucose increased [Unknown]
  - Anaemia [Unknown]
  - Thyroid adenoma [Recovered/Resolved]
  - Renal atrophy [Unknown]
  - Nephrolithiasis [Unknown]
  - Hypoxia [Unknown]
